FAERS Safety Report 6675591-0 (Version None)
Quarter: 2010Q2

REPORT INFORMATION
  Report Type: 
  Country: None (occurrence: None)
  Receive Date: 20100409
  Receipt Date: 20100330
  Transmission Date: 20101027
  Serious: Yes (Disabling)
  Sender: FDA-Public Use
  Company Number: PHEH2009US14507

PATIENT
  Sex: Female

DRUGS (7)
  1. RECLAST [Suspect]
     Indication: BONE DISORDER
     Dosage: UNK,UNK
     Dates: start: 20090902
  2. RECLAST [Suspect]
     Indication: OSTEOPOROSIS
  3. ACETAMINOPHEN AND HYDROCODONE BITARTRATE [Concomitant]
  4. WATER PILLS [Concomitant]
  5. CALCIUM WITH VITAMIN D [Concomitant]
  6. ANTIHYPERTENSIVES [Concomitant]
  7. CHOLESTEROL- AND TRIGLYCERIDE REDUCERS [Concomitant]

REACTIONS (9)
  - ACTIVITIES OF DAILY LIVING IMPAIRED [None]
  - ARTHRALGIA [None]
  - BLOOD PHOSPHORUS DECREASED [None]
  - BONE PAIN [None]
  - GROIN PAIN [None]
  - MYALGIA [None]
  - OSTEOMALACIA [None]
  - PAIN IN EXTREMITY [None]
  - VITAMIN D DECREASED [None]
